FAERS Safety Report 7149006-2 (Version None)
Quarter: 2010Q4

REPORT INFORMATION
  Report Type: 
  Country: None (occurrence: None)
  Receive Date: 20101209
  Receipt Date: 20101202
  Transmission Date: 20110411
  Serious: Yes (Other)
  Sender: FDA-Public Use
  Company Number: US-PFIZER INC-US-WYE-H16114910

PATIENT
  Sex: Female
  Weight: 69.9 kg

DRUGS (4)
  1. PREMPRO [Suspect]
     Dosage: 0.625/2.5 MG, 1X/DAY
     Route: 048
     Dates: start: 19900101, end: 20100101
  2. PREMPRO [Suspect]
     Dosage: UNK
  3. PREMPRO [Suspect]
     Dosage: UNK
  4. OMEPRAZOLE [Concomitant]

REACTIONS (7)
  - ARTHRALGIA [None]
  - ASTHENIA [None]
  - BACK PAIN [None]
  - FIBROMYALGIA [None]
  - MUSCLE SPASMS [None]
  - POLYMYALGIA RHEUMATICA [None]
  - THYROID DISORDER [None]
